FAERS Safety Report 18450762 (Version 1)
Quarter: 2020Q4

REPORT INFORMATION
  Report Type: Spontaneous
  Country: US (occurrence: US)
  Receive Date: 20201102
  Receipt Date: 20201102
  Transmission Date: 20210114
  Serious: No
  Sender: FDA-Public Use
  Company Number: US-AMGEN-USASP2020175212

PATIENT
  Sex: Male

DRUGS (2)
  1. ARANESP [Suspect]
     Active Substance: DARBEPOETIN ALFA
     Indication: MYELODYSPLASTIC SYNDROME
  2. ARANESP [Suspect]
     Active Substance: DARBEPOETIN ALFA
     Indication: NEOPLASM MALIGNANT
     Dosage: 2 MICROGRAM, Q2.5WK OR Q3WK
     Route: 065
     Dates: start: 202009

REACTIONS (1)
  - Off label use [Unknown]

NARRATIVE: CASE EVENT DATE: 202009
